FAERS Safety Report 6678161-3 (Version None)
Quarter: 2010Q2

REPORT INFORMATION
  Report Type: 
  Country: None (occurrence: None)
  Receive Date: 20100409
  Receipt Date: 20100409
  Transmission Date: 20101027
  Serious: Yes (Other)
  Sender: FDA-Public Use
  Company Number: None

PATIENT
  Age: 46 Year
  Sex: Female
  Weight: 68 kg

DRUGS (4)
  1. ABRAXANE [Suspect]
     Indication: OROPHARYNGEAL CANCER STAGE UNSPECIFIED
     Dosage: 20 MG/M2 WEEKLY IV
     Route: 042
     Dates: start: 20100203, end: 20100319
  2. ZOFRAN [Concomitant]
  3. DECADRON [Concomitant]
  4. COMPAZINE [Concomitant]

REACTIONS (1)
  - LYMPHOPENIA [None]
